FAERS Safety Report 13285325 (Version 1)
Quarter: 2017Q1

REPORT INFORMATION
  Report Type: Spontaneous
  Country: US (occurrence: US)
  Receive Date: 20170301
  Receipt Date: 20170301
  Transmission Date: 20170428
  Serious: No
  Sender: FDA-Public Use
  Company Number: None

PATIENT
  Age: 17 Year
  Sex: Female

DRUGS (1)
  1. EPIDUO [Suspect]
     Active Substance: ADAPALENE\BENZOYL PEROXIDE
     Indication: ACNE
     Dosage: ?    1 PEA SIZED AMOUNT; TOPICAL AT BEDTIME?
     Route: 061
     Dates: start: 20170206, end: 20170301

REACTIONS (2)
  - Erythema [None]
  - Burning sensation [None]

NARRATIVE: CASE EVENT DATE: 20170301
